FAERS Safety Report 16015436 (Version 1)
Quarter: 2019Q1

REPORT INFORMATION
  Report Type: Spontaneous
  Country: DE (occurrence: DE)
  Receive Date: 20190228
  Receipt Date: 20190228
  Transmission Date: 20190418
  Serious: Yes (Hospitalization)
  Sender: FDA-Public Use
  Company Number: DE-DRREDDYS-GER/GER/19/0107947

PATIENT
  Age: 17 Year
  Sex: Male
  Weight: 67 kg

DRUGS (8)
  1. CIATYL TROPFEN 20MG/ML [Concomitant]
     Active Substance: ZUCLOPENTHIXOL HYDROCHLORIDE
     Indication: PRODUCT USED FOR UNKNOWN INDICATION
     Dosage: DAILY DOSE: 24 GTT DROP(S) EVERY DAYS, 20MG/ML 3X8?, DRUG NOT ADMINISTERED
     Route: 048
  2. RISPERIDONE. [Suspect]
     Active Substance: RISPERIDONE
     Indication: WRONG DRUG
     Route: 048
     Dates: start: 20180715, end: 20180715
  3. RISPERIDON [Concomitant]
     Active Substance: RISPERIDONE
     Dates: start: 20180715, end: 20180715
  4. PIPAMPERON [Concomitant]
     Active Substance: PIPAMPERONE HYDROCHLORIDE
     Indication: PRODUCT USED FOR UNKNOWN INDICATION
     Dosage: DAILY DOSE: 120 MG MILLGRAM(S) EVERY DAYS, TBL. 3X40MG
     Route: 048
  5. BELLADONNA TINCTUR [Concomitant]
     Indication: PRODUCT USED FOR UNKNOWN INDICATION
     Dosage: DAILY DOSE: 27 GTT DROP(S) EVERY DAYS, 3X9
     Route: 048
  6. QUETIAPINE. [Suspect]
     Active Substance: QUETIAPINE
     Indication: WRONG DRUG
     Route: 048
     Dates: start: 20180715, end: 20180715
  7. ARIPIPRAZOLE. [Suspect]
     Active Substance: ARIPIPRAZOLE
     Indication: WRONG DRUG
     Route: 048
     Dates: start: 20180715, end: 20180715
  8. RISPERIDON [Concomitant]
     Active Substance: RISPERIDONE
     Indication: PRODUCT USED FOR UNKNOWN INDICATION
     Dosage: DAILY DOSE: 3 MG MILLGRAM(S) EVERY DAYS, TBL. 2X1.5MG, DRUG NOT ADMINISTERED
     Route: 048

REACTIONS (4)
  - Product dose omission [Recovered/Resolved]
  - Product administration error [Recovered/Resolved]
  - Wrong product administered [Recovered/Resolved]
  - Seizure [Recovered/Resolved]

NARRATIVE: CASE EVENT DATE: 20180715
